FAERS Safety Report 7452244-2 (Version None)
Quarter: 2011Q2

REPORT INFORMATION
  Report Type: 
  Country: None (occurrence: None)
  Receive Date: 20110502
  Receipt Date: 20110427
  Transmission Date: 20111010
  Serious: Yes (Hospitalization, Other)
  Sender: FDA-Public Use
  Company Number: ES-PFIZER INC-2011039989

PATIENT
  Age: 60 Year
  Sex: Female

DRUGS (7)
  1. LYRICA [Suspect]
     Indication: HERNIA PAIN
     Dosage: 75 MG, 1X/DAY
     Dates: start: 20101001
  2. DURAGESIC-100 [Concomitant]
     Dosage: UNK
     Dates: start: 20100301
  3. LYRICA [Suspect]
     Dosage: 75 MG, 5X/DAY
     Dates: end: 20110101
  4. MORPHINE [Suspect]
     Dosage: 10 MG, 4X/DAY
     Dates: start: 20110201, end: 20110321
  5. LYRICA [Suspect]
     Dosage: 75 MG, 2X/DAY
  6. LYRICA [Suspect]
     Dosage: 75 MG, 3X/DAY
  7. ADOLONTA [Concomitant]
     Dosage: UNK
     Dates: start: 20090101, end: 20110321

REACTIONS (7)
  - SWOLLEN TONGUE [None]
  - CHROMATURIA [None]
  - DRUG HYPERSENSITIVITY [None]
  - GASTRITIS [None]
  - MYALGIA [None]
  - VISUAL ACUITY REDUCED [None]
  - URINE OUTPUT DECREASED [None]
